FAERS Safety Report 14454393 (Version 1)
Quarter: 2018Q1

REPORT INFORMATION
  Report Type: Spontaneous
  Country: US (occurrence: US)
  Receive Date: 20180128
  Receipt Date: 20180128
  Transmission Date: 20180509
  Serious: Yes (Hospitalization)
  Sender: FDA-Public Use
  Company Number: None

PATIENT
  Age: 66 Year
  Sex: Female
  Weight: 92.25 kg

DRUGS (16)
  1. ALBUTEROL. [Concomitant]
     Active Substance: ALBUTEROL
  2. CALCIUM [Concomitant]
     Active Substance: CALCIUM
  3. METOPROLOL. [Concomitant]
     Active Substance: METOPROLOL
  4. MIRAPEX [Concomitant]
     Active Substance: PRAMIPEXOLE DIHYDROCHLORIDE
  5. PROZAC [Concomitant]
     Active Substance: FLUOXETINE HYDROCHLORIDE
  6. OSELTAMIVIT PHOSPHATE CASULE 75 MG [Suspect]
     Active Substance: OSELTAMIVIR PHOSPHATE
     Indication: INFLUENZA
     Dosage: ?          QUANTITY:1 CAPSULE(S);?
     Route: 048
     Dates: start: 20180125, end: 20180125
  7. IRON [Concomitant]
     Active Substance: IRON
  8. OSELTAMIVIT PHOSPHATE CASULE 75 MG [Suspect]
     Active Substance: OSELTAMIVIR PHOSPHATE
     Indication: PYREXIA
     Dosage: ?          QUANTITY:1 CAPSULE(S);?
     Route: 048
     Dates: start: 20180125, end: 20180125
  9. SYNTHROID [Concomitant]
     Active Substance: LEVOTHYROXINE SODIUM
  10. LYRICA [Concomitant]
     Active Substance: PREGABALIN
  11. PREVACID [Concomitant]
     Active Substance: LANSOPRAZOLE
  12. CPAP [Concomitant]
     Active Substance: DEVICE
  13. POTASIUM [Concomitant]
  14. LETROZOLE. [Concomitant]
     Active Substance: LETROZOLE
  15. MULTI VITAMIN [Concomitant]
     Active Substance: VITAMINS
  16. LORAZEPAM. [Concomitant]
     Active Substance: LORAZEPAM

REACTIONS (6)
  - Unresponsive to stimuli [None]
  - Nausea [None]
  - Loss of consciousness [None]
  - Syncope [None]
  - Dyspnoea [None]
  - Hyperhidrosis [None]

NARRATIVE: CASE EVENT DATE: 20180125
